FAERS Safety Report 8002467-9 (Version None)
Quarter: 2011Q4

REPORT INFORMATION
  Report Type: 
  Country: None (occurrence: None)
  Receive Date: 20111222
  Receipt Date: 20111213
  Transmission Date: 20120403
  Serious: Yes (Hospitalization)
  Sender: FDA-Public Use
  Company Number: US-VERTEX PHARMACEUTICALS INC.-AE-2011-005319

PATIENT
  Age: 59 Year
  Sex: Male
  Weight: 95.34 kg

DRUGS (3)
  1. INCIVEK [Suspect]
     Indication: HEPATITIS C
     Dates: start: 20111001, end: 20111129
  2. INTERFERON [Concomitant]
     Indication: HEPATITIS C
     Dates: start: 20111001, end: 20111129
  3. RIBAVIRIN [Concomitant]
     Indication: HEPATITIS C
     Dates: start: 20111001, end: 20111129

REACTIONS (3)
  - GASTROINTESTINAL INFECTION [None]
  - DEHYDRATION [None]
  - RED BLOOD CELL COUNT DECREASED [None]
